FAERS Safety Report 10956815 (Version 1)
Quarter: 2015Q1

REPORT INFORMATION
  Report Type: Spontaneous
  Country: US (occurrence: None)
  Receive Date: 20150325
  Receipt Date: 20150325
  Transmission Date: 20150721
  Serious: Yes (Other)
  Sender: FDA-Public Use
  Company Number: None

PATIENT
  Age: 23 Year
  Sex: Female
  Weight: 84.37 kg

DRUGS (5)
  1. OMEPRAZOLE. [Concomitant]
     Active Substance: OMEPRAZOLE
  2. POLYETHYLENE GLYCOL [Concomitant]
     Active Substance: POLYETHYLENE GLYCOLS
  3. FERROUS SULFATE [Concomitant]
     Active Substance: FERROUS SULFATE\FERROUS SULFATE, DRIED
  4. VITAMIN D [Concomitant]
     Active Substance: CHOLECALCIFEROL
  5. PRESCRIPTION CLARITHROMYCIN 500MG [Suspect]
     Active Substance: CLARITHROMYCIN
     Indication: SINUSITIS
     Dosage: 1
     Route: 048
     Dates: start: 20150319, end: 20150324

REACTIONS (4)
  - Dry throat [None]
  - Dry mouth [None]
  - Tongue disorder [None]
  - Dyspnoea [None]

NARRATIVE: CASE EVENT DATE: 20150324
